FAERS Safety Report 9147782 (Version 1)
Quarter: 2013Q1

REPORT INFORMATION
  Report Type: Spontaneous
  Country: IT (occurrence: IT)
  Receive Date: 20130307
  Receipt Date: 20130307
  Transmission Date: 20140127
  Serious: Yes (Hospitalization)
  Sender: FDA-Public Use
  Company Number: IT-ELI_LILLY_AND_COMPANY-IT201302010068

PATIENT
  Age: 69 Year
  Sex: Male

DRUGS (6)
  1. GEMZAR [Suspect]
     Indication: BLADDER CANCER
     Dosage: 1780 MG, PER CYCLE
     Route: 042
     Dates: start: 20130114, end: 20130121
  2. CARBOPLATINO [Concomitant]
     Indication: BLADDER CANCER
     Dosage: 480 MG, PER CYCLE
     Route: 042
     Dates: start: 20130114, end: 20130114
  3. CARDIOASPIRIN [Concomitant]
     Indication: ANTICOAGULANT THERAPY
     Dosage: 100 MG, UNK
     Route: 048
  4. ZOFRAN [Concomitant]
     Indication: PREMEDICATION
     Dosage: 8 MG, UNK
     Route: 042
     Dates: start: 20130121, end: 20130121
  5. ALOXI [Concomitant]
     Indication: PREMEDICATION
     Dosage: 250 UG, UNK
     Route: 042
     Dates: start: 20130114, end: 20130114
  6. ARANESP [Concomitant]
     Indication: ANAEMIA
     Dosage: 150 UG, UNK
     Route: 058

REACTIONS (3)
  - Thrombocytopenia [Recovered/Resolved with Sequelae]
  - Rectal haemorrhage [Recovered/Resolved with Sequelae]
  - Off label use [Unknown]
